FAERS Safety Report 8991410 (Version 2)
Quarter: 2013Q2

REPORT INFORMATION
  Report Type: Spontaneous
  Country: JP (occurrence: JP)
  Receive Date: 20121228
  Receipt Date: 20130507
  Transmission Date: 20140414
  Serious: Yes (Hospitalization, Congenital Anomaly)
  Sender: FDA-Public Use
  Company Number: JP-009507513-1212JPN010162

PATIENT
  Age: 65 Year
  Sex: Male
  Weight: 55 kg

DRUGS (8)
  1. JANUVIA TABLETS 50MG [Suspect]
     Indication: DIABETES MELLITUS
     Dosage: 50 MG, QD
     Route: 048
     Dates: start: 20120630, end: 20121017
  2. GASTER [Suspect]
     Dosage: 1 DF, ONCE
     Route: 048
     Dates: start: 20121014
  3. NORVASC OD [Concomitant]
     Indication: HYPERTENSION
     Dosage: 5 MG, QD
     Route: 048
     Dates: start: 20120704, end: 20121017
  4. OLMETEC [Concomitant]
     Indication: HYPERTENSION
     Dosage: 10 MG, QAM
     Route: 048
  5. AMARYL [Concomitant]
     Indication: DIABETES MELLITUS
     Dosage: 2 MG, QD
     Route: 048
     Dates: start: 20120628, end: 20121017
  6. YOKU-KAN-SAN [Concomitant]
     Indication: MENTAL IMPAIRMENT
     Dosage: 2.5 G, QD
     Route: 048
     Dates: start: 20120809, end: 20121017
  7. MAGMITT [Concomitant]
     Indication: CONSTIPATION
     Dosage: 750 MG, QD
     Route: 048
     Dates: start: 20120628, end: 20121017
  8. SENNOSIDES [Concomitant]
     Indication: CONSTIPATION
     Dosage: 2 DF,PRN,  TAKEN AS NEED
     Route: 048

REACTIONS (2)
  - Intestinal obstruction [Recovered/Resolved]
  - Pneumonia aspiration [Recovered/Resolved]
